FAERS Safety Report 4588549-2 (Version None)
Quarter: 2005Q1

REPORT INFORMATION
  Report Type: 
  Country: None (occurrence: None)
  Receive Date: 20050216
  Receipt Date: 20050216
  Transmission Date: 20050727
  Serious: No
  Sender: FDA-Public Use
  Company Number: None

PATIENT
  Sex: Male
  Weight: 77.1115 kg

DRUGS (7)
  1. FLOMAX [Suspect]
     Indication: BENIGN PROSTATIC HYPERPLASIA
     Dosage: 0.4 MG   TWO EVERY AM   ORAL
     Route: 048
     Dates: start: 20040505, end: 20050210
  2. AMBIEN [Concomitant]
  3. ALTACE [Concomitant]
  4. LANOXIN [Concomitant]
  5. NEURONTIN [Concomitant]
  6. ASPIRIN [Concomitant]
  7. CLOSAMINE [Concomitant]

REACTIONS (2)
  - MIOSIS [None]
  - PROCEDURAL COMPLICATION [None]
